FAERS Safety Report 18419724 (Version 9)
Quarter: 2021Q4

REPORT INFORMATION
  Report Type: Spontaneous
  Country: US (occurrence: US)
  Receive Date: 20201023
  Receipt Date: 20211221
  Transmission Date: 20220303
  Serious: Yes (Other)
  Sender: FDA-Public Use
  Company Number: US-PFIZER INC-2020404340

PATIENT
  Age: 13 Year
  Sex: Female
  Weight: 43.09 kg

DRUGS (2)
  1. GENOTROPIN [Suspect]
     Active Substance: SOMATROPIN
     Indication: Short stature
     Dosage: 1.8 MG
     Dates: start: 20200923
  2. GENOTROPIN [Suspect]
     Active Substance: SOMATROPIN
     Dosage: 2.2 MG, CYCLIC (6 DAYS A WEEK)

REACTIONS (5)
  - Loss of consciousness [Unknown]
  - Injection site extravasation [Unknown]
  - Drug dose omission by device [Unknown]
  - Device leakage [Unknown]
  - Headache [Unknown]

NARRATIVE: CASE EVENT DATE: 20200923
